FAERS Safety Report 9240633 (Version 1)
Quarter: 2013Q1

REPORT INFORMATION
  Report Type: Spontaneous
  Country: US (occurrence: None)
  Receive Date: 20121120
  Receipt Date: 20121120
  Transmission Date: 20140127
  Serious: No
  Sender: FDA-Public Use
  Company Number: 1000037793

PATIENT
  Sex: Female

DRUGS (9)
  1. VIIBRYD [Suspect]
     Indication: DEPRESSION
     Dosage: 10 MG (10 MG, 1 IN 1 D), ORAL
     Route: 048
     Dates: start: 20120727, end: 20120802
  2. NEURONTIN (GABAPENTIN) [Suspect]
     Indication: NEURALGIA
     Dosage: 100 MG (100 MG, 1 IN 1 D)
     Dates: start: 201208
  3. KLONOPIN [Concomitant]
  4. NORVASC (AMLODIPINE BESILATE) (AMLODIPINE BESILATE) [Concomitant]
  5. DILTIAZEM DC (DILTIAZEM) (DILTIAZEM) [Concomitant]
  6. LOSARTAN/HYDROCHLOROTHIAZIDE (LOSARTAN, HYDROCHLOROTHIAZIDE) (LOSARTAN, HYDROCHLOROTHIAZIDE) [Concomitant]
  7. FENOFIBRATE (FENOFIBRATE) (FENOFIBRATE) [Concomitant]
  8. DULERA (MOMETASONE) (MOMETASONE) [Concomitant]
  9. COUMADIN (WARFARIN) (WARFARIN) [Concomitant]

REACTIONS (5)
  - Insomnia [None]
  - Crying [None]
  - Nightmare [None]
  - Irritability [None]
  - Dizziness [None]
